FAERS Safety Report 5246627-9 (Version None)
Quarter: 2007Q1

REPORT INFORMATION
  Report Type: 
  Country: None (occurrence: None)
  Receive Date: 20070221
  Receipt Date: 20070208
  Transmission Date: 20070707
  Serious: Yes (Other)
  Sender: FDA-Public Use
  Company Number: 236404

PATIENT
  Age: 71 Year
  Sex: Male

DRUGS (1)
  1. ACTIVASE [Suspect]
     Indication: ISCHAEMIA
     Dosage: UNK, UNK, INTRAVENOUS
     Route: 042

REACTIONS (9)
  - BACK PAIN [None]
  - CONDITION AGGRAVATED [None]
  - HYPERHIDROSIS [None]
  - HYPOTENSION [None]
  - MUSCLE CONTRACTIONS INVOLUNTARY [None]
  - MUSCLE SPASMS [None]
  - PARALYSIS FLACCID [None]
  - REPERFUSION INJURY [None]
  - SPINAL SHOCK [None]
